FAERS Safety Report 5546074-6 (Version None)
Quarter: 2007Q4

REPORT INFORMATION
  Report Type: 
  Country: None (occurrence: None)
  Receive Date: 20071211
  Receipt Date: 20070921
  Transmission Date: 20080405
  Serious: No
  Sender: FDA-Public Use
  Company Number: US-BRISTOL-MYERS SQUIBB COMPANY-13916887

PATIENT
  Sex: Female

DRUGS (1)
  1. EMSAM [Suspect]
     Dosage: DOSE INCREASED TO 9MG AFTER 46DAYS OF 6MG.

REACTIONS (2)
  - ABNORMAL BEHAVIOUR [None]
  - INSOMNIA [None]
